FAERS Safety Report 5531562-9 (Version None)
Quarter: 2007Q4

REPORT INFORMATION
  Report Type: 
  Country: None (occurrence: None)
  Receive Date: 20071203
  Receipt Date: 20071126
  Transmission Date: 20080405
  Serious: Yes (Death, Hospitalization, Other)
  Sender: FDA-Public Use
  Company Number: PHEH2007US15084

PATIENT
  Age: 36 Year
  Sex: Female

DRUGS (6)
  1. TASIGNA [Suspect]
     Indication: ACUTE LYMPHOCYTIC LEUKAEMIA RECURRENT
     Dosage: 400 MG, BID
     Route: 048
     Dates: start: 20071115, end: 20071121
  2. FLUCONAZOLE [Concomitant]
     Dosage: 100 MG, QD
     Route: 048
     Dates: start: 20070101
  3. ZYPREXA [Concomitant]
     Dosage: 5 MG, QD
     Route: 048
     Dates: start: 20070101
  4. ACYCLOVIR [Concomitant]
     Dosage: UNK, UNK
     Dates: start: 20070101
  5. LORAZEPAM [Concomitant]
     Dosage: 1 MG, QD
     Route: 048
  6. YASMIN [Concomitant]
     Dosage: UNK, UNK
     Route: 048
     Dates: start: 20070101

REACTIONS (25)
  - ABDOMINAL DISCOMFORT [None]
  - ACIDOSIS [None]
  - ACUTE LYMPHOCYTIC LEUKAEMIA RECURRENT [None]
  - BLOOD CREATININE INCREASED [None]
  - BLOOD UREA INCREASED [None]
  - CARDIAC FAILURE CONGESTIVE [None]
  - CENTRAL NERVOUS SYSTEM LEUKAEMIA [None]
  - DEHYDRATION [None]
  - DILATATION VENTRICULAR [None]
  - DISORIENTATION [None]
  - DYSPNOEA [None]
  - ECHOCARDIOGRAM ABNORMAL [None]
  - EJECTION FRACTION DECREASED [None]
  - FATIGUE [None]
  - FLUID OVERLOAD [None]
  - HYPERKALAEMIA [None]
  - LEUKOCYTOSIS [None]
  - MALIGNANT NEOPLASM PROGRESSION [None]
  - ORAL INTAKE REDUCED [None]
  - OXYGEN SATURATION DECREASED [None]
  - PERICARDIAL EFFUSION [None]
  - PULMONARY HYPERTENSION [None]
  - RENAL DISORDER [None]
  - RENAL FAILURE ACUTE [None]
  - RIGHT ATRIAL DILATATION [None]
